FAERS Safety Report 12737644 (Version 1)
Quarter: 2016Q3

REPORT INFORMATION
  Report Type: Spontaneous
  Country: US (occurrence: US)
  Receive Date: 20160912
  Receipt Date: 20160912
  Transmission Date: 20161109
  Serious: No
  Sender: FDA-Public Use
  Company Number: US-SA-2016SA115232

PATIENT

DRUGS (5)
  1. FLEXTOUCH [Suspect]
     Active Substance: DEVICE
     Route: 065
  2. SOLOSTAR [Concomitant]
     Active Substance: DEVICE
  3. LEVEMIR [Suspect]
     Active Substance: INSULIN DETEMIR
     Route: 065
  4. APIDRA [Suspect]
     Active Substance: INSULIN GLULISINE
     Indication: DIABETES MELLITUS
     Route: 065
  5. TOUJEO [Suspect]
     Active Substance: INSULIN GLARGINE
     Route: 065

REACTIONS (1)
  - Blood glucose increased [Unknown]
